FAERS Safety Report 5373958-4 (Version None)
Quarter: 2007Q2

REPORT INFORMATION
  Report Type: 
  Country: None (occurrence: None)
  Receive Date: 20070627
  Receipt Date: 20070612
  Transmission Date: 20071010
  Serious: Yes (Hospitalization)
  Sender: FDA-Public Use
  Company Number: 8024459

PATIENT
  Age: 13 Year
  Sex: Female
  Weight: 53.6 kg

DRUGS (2)
  1. KEPPRA [Suspect]
     Dosage: 500 MG
  2. TOPAMAX [Suspect]

REACTIONS (9)
  - BLOOD PRESSURE DIASTOLIC DECREASED [None]
  - BLUNTED AFFECT [None]
  - CRYING [None]
  - HEART RATE DECREASED [None]
  - MOOD ALTERED [None]
  - MULTIPLE DRUG OVERDOSE INTENTIONAL [None]
  - NEUROLOGICAL SYMPTOM [None]
  - PARAESTHESIA [None]
  - PARANOIA [None]
